FAERS Safety Report 5844475-X (Version None)
Quarter: 2008Q3

REPORT INFORMATION
  Report Type: 
  Country: None (occurrence: None)
  Receive Date: 20080812
  Receipt Date: 20080805
  Transmission Date: 20090109
  Serious: Yes (Hospitalization)
  Sender: FDA-Public Use
  Company Number: 2008SP013592

PATIENT
  Age: 50 Year
  Sex: Male
  Weight: 77.1115 kg

DRUGS (10)
  1. PEG-INTRON [Suspect]
     Indication: HEPATITIS C
     Dosage: 120 MCG; SC
     Route: 058
     Dates: start: 20080220, end: 20080618
  2. REBETOL [Suspect]
     Indication: HEPATITIS C
     Dosage: 200 MG; PO
     Route: 048
     Dates: start: 20080220, end: 20080702
  3. INVESTIGATIONAL DRUG [Suspect]
     Indication: HEPATITIS C
     Dosage: IV
     Route: 042
     Dates: start: 20080220, end: 20080528
  4. LANTUS [Concomitant]
  5. COZAAR [Concomitant]
  6. LEXAPRO [Concomitant]
  7. ADVIL LIQUI-GELS [Concomitant]
  8. PREVACID [Concomitant]
  9. LACRI-LUBE [Concomitant]
  10. LUMIGAN [Concomitant]

REACTIONS (11)
  - ASPARTATE AMINOTRANSFERASE INCREASED [None]
  - BLOOD GLUCOSE INCREASED [None]
  - DECREASED APPETITE [None]
  - HAEMATOMA INFECTION [None]
  - HAEMOGLOBIN DECREASED [None]
  - HYPONATRAEMIA [None]
  - NAUSEA [None]
  - PITTING OEDEMA [None]
  - STAPHYLOCOCCAL ABSCESS [None]
  - STAPHYLOCOCCAL OSTEOMYELITIS [None]
  - WEIGHT DECREASED [None]
